FAERS Safety Report 7487262-1 (Version None)
Quarter: 2011Q2

REPORT INFORMATION
  Report Type: 
  Country: None (occurrence: None)
  Receive Date: 20110518
  Receipt Date: 20110503
  Transmission Date: 20111010
  Serious: Yes (Hospitalization)
  Sender: FDA-Public Use
  Company Number: HR-JNJFOC-20110503318

PATIENT
  Age: 41 Year
  Sex: Female

DRUGS (4)
  1. RISPERDONE [Suspect]
     Indication: SCHIZOPHRENIA
     Route: 048
     Dates: start: 20080101, end: 20090101
  2. RISPERDAL CONSTA [Suspect]
     Indication: SCHIZOPHRENIA
     Route: 030
     Dates: start: 20080101
  3. RISPERDAL CONSTA [Suspect]
     Route: 030
  4. RISPERDONE [Suspect]
     Indication: SCHIZOPHRENIA
     Route: 048
     Dates: start: 20050101

REACTIONS (5)
  - ABNORMAL BEHAVIOUR [None]
  - SCHIZOPHRENIA [None]
  - THERAPY CESSATION [None]
  - PARANOIA [None]
  - PSYCHOMOTOR HYPERACTIVITY [None]
